FAERS Safety Report 4620575-7 (Version None)
Quarter: 2005Q1

REPORT INFORMATION
  Report Type: 
  Country: None (occurrence: None)
  Receive Date: 20050324
  Receipt Date: 20050317
  Transmission Date: 20050727
  Serious: Yes (Death)
  Sender: FDA-Public Use
  Company Number: 6013741

PATIENT
  Age: 73 Year
  Sex: Male

DRUGS (5)
  1. BISOPROLOL (CHF) (TABLET) (BISOPROLOL) [Suspect]
     Indication: CARDIAC FAILURE CONGESTIVE
     Dosage: 10 MG (10 MG, 1 IN 1 D)
     Route: 048
     Dates: start: 20030124
  2. ENALAPRIL MALEATE [Suspect]
     Indication: CARDIAC FAILURE CONGESTIVE
     Dosage: 20 MG (10 MG, 2 IN 1 D)
     Route: 048
     Dates: start: 20030811
  3. LASIX [Concomitant]
  4. DIGOXIN [Concomitant]
  5. MARCUMAR [Concomitant]

REACTIONS (1)
  - DEATH [None]
